FAERS Safety Report 10391329 (Version 1)
Quarter: 2014Q3

REPORT INFORMATION
  Report Type: Report from Study
  Country: DE (occurrence: DE)
  Receive Date: 20140818
  Receipt Date: 20140818
  Transmission Date: 20150326
  Serious: Yes (Hospitalization)
  Sender: FDA-Public Use
  Company Number: DE-ABBVIE-14K-062-1271351-00

PATIENT
  Age: 58 Year
  Sex: Female
  Weight: 93 kg

DRUGS (3)
  1. RAMIPRIL + HIDROCLOROTIAZIDA [Concomitant]
     Indication: PRODUCT USED FOR UNKNOWN INDICATION
     Dosage: 5MG/25MG
     Dates: start: 2004
  2. HUMIRA [Suspect]
     Active Substance: ADALIMUMAB
     Indication: PSORIASIS
     Route: 058
     Dates: start: 20120530
  3. HUMIRA [Suspect]
     Active Substance: ADALIMUMAB
     Indication: PSORIATIC ARTHROPATHY

REACTIONS (2)
  - Arteriosclerosis [Unknown]
  - Deafness [Recovered/Resolved]

NARRATIVE: CASE EVENT DATE: 20140625
